FAERS Safety Report 16653423 (Version 6)
Quarter: 2021Q4

REPORT INFORMATION
  Report Type: Spontaneous
  Country: US (occurrence: US)
  Receive Date: 20190731
  Receipt Date: 20211105
  Transmission Date: 20220303
  Serious: Yes (Other)
  Sender: FDA-Public Use
  Company Number: US-GILEAD-2019-0420315

PATIENT
  Sex: Male
  Weight: 89.796 kg

DRUGS (40)
  1. TRUVADA [Suspect]
     Active Substance: EMTRICITABINE\TENOFOVIR DISOPROXIL FUMARATE
     Indication: HIV infection
     Dosage: 1 DOSAGE FORM (200-300 MG), QD
     Route: 048
     Dates: start: 20080715, end: 20190215
  2. TRUVADA [Suspect]
     Active Substance: EMTRICITABINE\TENOFOVIR DISOPROXIL FUMARATE
     Dosage: UNK
     Route: 048
     Dates: start: 2004, end: 20190215
  3. TRUVADA [Suspect]
     Active Substance: EMTRICITABINE\TENOFOVIR DISOPROXIL FUMARATE
     Dosage: UNK
     Route: 065
     Dates: start: 2004, end: 20190915
  4. TRUVADA [Suspect]
     Active Substance: EMTRICITABINE\TENOFOVIR DISOPROXIL FUMARATE
     Dosage: UNK
     Route: 048
     Dates: start: 2004, end: 2019
  5. DESCOVY [Concomitant]
     Active Substance: EMTRICITABINE\TENOFOVIR ALAFENAMIDE FUMARATE
     Indication: HIV infection
     Dosage: 1 DOSAGE FORM (200-25 MG), QD
     Route: 048
  6. NICOTINE POLACRILEX [Concomitant]
     Active Substance: NICOTINE
  7. DICLOFENAC SODIUM [Concomitant]
     Active Substance: DICLOFENAC SODIUM
  8. ALBUTEROL SULFATE [Concomitant]
     Active Substance: ALBUTEROL SULFATE
  9. IBUPROFEN [Concomitant]
     Active Substance: IBUPROFEN
  10. PREZISTA [Concomitant]
     Active Substance: DARUNAVIR ETHANOLATE
  11. KETOCONAZOLE [Concomitant]
     Active Substance: KETOCONAZOLE
  12. MICONAZOLE [Concomitant]
     Active Substance: MICONAZOLE
  13. NORVIR [Concomitant]
     Active Substance: RITONAVIR
  14. AUGMENTIN [Concomitant]
     Active Substance: AMOXICILLIN\CLAVULANATE POTASSIUM
  15. TRIAMCINOLONE ACETONIDE [Concomitant]
     Active Substance: TRIAMCINOLONE ACETONIDE
  16. QVAR [Concomitant]
     Active Substance: BECLOMETHASONE DIPROPIONATE
  17. CLOTRIMAZOLE [Concomitant]
     Active Substance: CLOTRIMAZOLE
  18. INVIRASE [Concomitant]
     Active Substance: SAQUINAVIR MESYLATE
  19. TRAMADOL [Concomitant]
     Active Substance: TRAMADOL
  20. VENTOLIN HFA [Concomitant]
     Active Substance: ALBUTEROL SULFATE
  21. CYCLOBENZAPRINE [Concomitant]
     Active Substance: CYCLOBENZAPRINE
  22. SYMBICORT [Concomitant]
     Active Substance: BUDESONIDE\FORMOTEROL FUMARATE DIHYDRATE
  23. CAPSAICIN [Concomitant]
     Active Substance: CAPSAICIN
  24. PROVENTIL HFA [Concomitant]
     Active Substance: ALBUTEROL SULFATE
  25. VIRAMUNE XR [Concomitant]
     Active Substance: NEVIRAPINE
  26. PROAIR HFA [Concomitant]
     Active Substance: ALBUTEROL SULFATE
  27. NAPROXEN [Concomitant]
     Active Substance: NAPROXEN
  28. SUSTIVA [Concomitant]
     Active Substance: EFAVIRENZ
  29. DOCUSATE SODIUM [Concomitant]
     Active Substance: DOCUSATE SODIUM
  30. SUCRALFATE [Concomitant]
     Active Substance: SUCRALFATE
  31. DOXYCYCLINE HYCLATE [Concomitant]
     Active Substance: DOXYCYCLINE HYCLATE
  32. ACETAMINOPHEN [Concomitant]
     Active Substance: ACETAMINOPHEN
  33. AZITHROMYCIN [Concomitant]
     Active Substance: AZITHROMYCIN
  34. ATROPINE\DIPHENOXYLATE [Concomitant]
     Active Substance: ATROPINE\DIPHENOXYLATE
  35. PROMETHAZINE [Concomitant]
     Active Substance: PROMETHAZINE HYDROCHLORIDE
  36. TERBINAFINE [Concomitant]
     Active Substance: TERBINAFINE
  37. FLUCONAZOLE [Concomitant]
     Active Substance: FLUCONAZOLE
  38. HYDROXYZINE HYDROCHLORIDE [Concomitant]
     Active Substance: HYDROXYZINE HYDROCHLORIDE
  39. ACETAMINOPHEN AND CODEINE [Concomitant]
     Active Substance: ACETAMINOPHEN\CODEINE PHOSPHATE
  40. RETROVIR [Concomitant]
     Active Substance: ZIDOVUDINE

REACTIONS (13)
  - Multiple fractures [Unknown]
  - Patella fracture [Recovered/Resolved]
  - Osteonecrosis [Not Recovered/Not Resolved]
  - Bone density decreased [Not Recovered/Not Resolved]
  - Bone loss [Unknown]
  - Tooth loss [Not Recovered/Not Resolved]
  - Emotional distress [Not Recovered/Not Resolved]
  - Anhedonia [Unknown]
  - Economic problem [Unknown]
  - Anxiety [Not Recovered/Not Resolved]
  - Pain [Not Recovered/Not Resolved]
  - Depression [Not Recovered/Not Resolved]
  - Mobility decreased [Unknown]

NARRATIVE: CASE EVENT DATE: 20130101
